FAERS Safety Report 8007050-7 (Version None)
Quarter: 2011Q4

REPORT INFORMATION
  Report Type: 
  Country: None (occurrence: None)
  Receive Date: 20111227
  Receipt Date: 20111219
  Transmission Date: 20120403
  Serious: Yes (Hospitalization)
  Sender: FDA-Public Use
  Company Number: US-BAYER-2011-034676

PATIENT
  Age: 30 Year
  Sex: Female
  Weight: 93.424 kg

DRUGS (5)
  1. YAZ [Suspect]
     Indication: CONTRACEPTION
     Dosage: UNK
     Route: 048
     Dates: start: 20081201, end: 20090301
  2. YASMIN [Suspect]
     Indication: CONTRACEPTION
     Dosage: UNK
     Route: 048
     Dates: start: 20060901, end: 20061001
  3. CEPHALEXIN [Concomitant]
     Indication: UPPER RESPIRATORY TRACT INFECTION
     Route: 048
  4. MOTRIN [Concomitant]
     Route: 048
  5. TYLENOL W/ CODEINE NO. 3 [Concomitant]
     Dosage: UNK
     Route: 048
     Dates: start: 20090121

REACTIONS (6)
  - EMOTIONAL DISTRESS [None]
  - INJURY [None]
  - PAIN IN EXTREMITY [None]
  - PAIN [None]
  - FEAR [None]
  - DEEP VEIN THROMBOSIS [None]
